FAERS Safety Report 22184582 (Version 1)
Quarter: 2023Q2

REPORT INFORMATION
  Report Type: Spontaneous
  Country: RU (occurrence: None)
  Receive Date: 20230407
  Receipt Date: 20230407
  Transmission Date: 20230722
  Serious: Yes (Other)
  Sender: FDA-Public Use
  Company Number: RU-ROCHE-3324008

PATIENT
  Age: 69 Year
  Sex: Female

DRUGS (8)
  1. TRASTUZUMAB [Suspect]
     Active Substance: TRASTUZUMAB
     Indication: HER2 positive breast cancer
     Dosage: LOADING DOSE 8 MG/KG
     Route: 041
     Dates: start: 20210428, end: 20210902
  2. TRASTUZUMAB [Suspect]
     Active Substance: TRASTUZUMAB
     Route: 041
     Dates: start: 20211023
  3. PERTUZUMAB [Suspect]
     Active Substance: PERTUZUMAB
     Indication: HER2 positive breast cancer
     Dosage: LOADING DOSE 840 MG, FLUID DRIP
     Route: 042
     Dates: start: 20210428, end: 20210902
  4. PERTUZUMAB [Suspect]
     Active Substance: PERTUZUMAB
     Route: 042
     Dates: start: 20211023
  5. DOCETAXEL [Suspect]
     Active Substance: DOCETAXEL
     Indication: HER2 positive breast cancer
     Route: 042
     Dates: start: 20210428, end: 20210902
  6. ZOLEDRONIC ACID [Suspect]
     Active Substance: ZOLEDRONIC ACID
     Indication: HER2 positive breast cancer
     Route: 042
     Dates: start: 20210428, end: 20210902
  7. ZOLEDRONIC ACID [Suspect]
     Active Substance: ZOLEDRONIC ACID
     Route: 042
     Dates: start: 20211023
  8. ADO-TRASTUZUMAB EMTANSINE [Suspect]
     Active Substance: ADO-TRASTUZUMAB EMTANSINE
     Indication: HER2 positive breast cancer
     Dosage: FLUID DRIP, 12 CYCLES COMPLETED
     Route: 042
     Dates: start: 20220720

REACTIONS (9)
  - Metastases to lung [Unknown]
  - Hydrothorax [Unknown]
  - Metastases to central nervous system [Unknown]
  - Metastases to bone [Unknown]
  - Metastases to liver [Unknown]
  - Ejection fraction decreased [Unknown]
  - Dyspnoea [Unknown]
  - Therapy partial responder [Unknown]
  - Pleural effusion [Unknown]
